FAERS Safety Report 16590542 (Version 1)
Quarter: 2019Q3

REPORT INFORMATION
  Report Type: Spontaneous
  Country: US (occurrence: US)
  Receive Date: 20190717
  Receipt Date: 20190717
  Transmission Date: 20191004
  Serious: Yes (Other)
  Sender: FDA-Public Use
  Company Number: None

PATIENT
  Age: 77 Year
  Sex: Male
  Weight: 101.1 kg

DRUGS (1)
  1. SUTENT [Suspect]
     Active Substance: SUNITINIB MALATE
     Indication: RENAL CELL CARCINOMA
     Dosage: ?          OTHER FREQUENCY:QD X14D;?
     Route: 048
     Dates: start: 20190125, end: 20190717

REACTIONS (1)
  - Disease progression [None]

NARRATIVE: CASE EVENT DATE: 20190707
